FAERS Safety Report 22064572 (Version 1)
Quarter: 2023Q1

REPORT INFORMATION
  Report Type: Spontaneous
  Country: US (occurrence: None)
  Receive Date: 20230305
  Receipt Date: 20230305
  Transmission Date: 20230418
  Serious: Yes (Other)
  Sender: FDA-Public Use
  Company Number: None

PATIENT
  Age: 77 Year
  Sex: Female
  Weight: 85.05 kg

DRUGS (18)
  1. GADOLINIUM [Suspect]
     Active Substance: GADOLINIUM
     Indication: Contrast media deposition
     Route: 048
     Dates: start: 20230302, end: 20230302
  2. MESTINON [Concomitant]
     Active Substance: PYRIDOSTIGMINE BROMIDE
  3. VALTREX [Concomitant]
     Active Substance: VALACYCLOVIR HYDROCHLORIDE
  4. VALSARTAN [Concomitant]
     Active Substance: VALSARTAN
  5. FIRDAPSE [Concomitant]
     Active Substance: AMIFAMPRIDINE PHOSPHATE
  6. TROSPIUM [Concomitant]
     Active Substance: TROSPIUM
  7. ATORVASTATIN [Concomitant]
     Active Substance: ATORVASTATIN
  8. COLCHICINE [Concomitant]
     Active Substance: COLCHICINE
  9. AZATHIOPRINE [Concomitant]
     Active Substance: AZATHIOPRINE
  10. TRILEPTAL [Concomitant]
     Active Substance: OXCARBAZEPINE
  11. LYRICA [Concomitant]
     Active Substance: PREGABALIN
  12. TRIAZOLAM [Concomitant]
     Active Substance: TRIAZOLAM
  13. VITAMIN D [Concomitant]
     Active Substance: VITAMIN D NOS
  14. VITAMIN B12 [Concomitant]
     Active Substance: CYANOCOBALAMIN
  15. CALCIUM CHLORIDE [Concomitant]
     Active Substance: CALCIUM CHLORIDE
  16. LOW DOSE ASPIRIN [Concomitant]
     Active Substance: ASPIRIN
  17. PROBIOTICS NOS [Concomitant]
     Active Substance: PROBIOTICS NOS
  18. TYLENOL [Concomitant]
     Active Substance: ACETAMINOPHEN

REACTIONS (6)
  - Diarrhoea [None]
  - Presyncope [None]
  - Nausea [None]
  - Chills [None]
  - Contrast media reaction [None]
  - Asthenia [None]

NARRATIVE: CASE EVENT DATE: 20230302
